FAERS Safety Report 5613437-X (Version None)
Quarter: 2008Q1

REPORT INFORMATION
  Report Type: 
  Country: None (occurrence: None)
  Receive Date: 20080205
  Receipt Date: 20080130
  Transmission Date: 20080703
  Serious: Yes (Death)
  Sender: FDA-Public Use
  Company Number: BR-BAYER-200810938LA

PATIENT
  Age: 27 Year
  Sex: Female

DRUGS (2)
  1. YAZ [Suspect]
     Indication: ORAL CONTRACEPTION
     Route: 048
  2. UNKNOWN DRUG [Concomitant]
     Indication: PANIC DISORDER
     Route: 065

REACTIONS (1)
  - CEREBROVASCULAR ACCIDENT [None]
